FAERS Safety Report 11785002 (Version 5)
Quarter: 2016Q3

REPORT INFORMATION
  Report Type: Report from Study
  Country: CA (occurrence: CA)
  Receive Date: 20151130
  Receipt Date: 20160922
  Transmission Date: 20161109
  Serious: Yes (Other)
  Sender: FDA-Public Use
  Company Number: CA-ROCHE-1141931

PATIENT
  Age: 54 Year
  Sex: Female
  Weight: 118 kg

DRUGS (9)
  1. ACTEMRA [Suspect]
     Active Substance: TOCILIZUMAB
     Indication: RHEUMATOID ARTHRITIS
     Route: 042
     Dates: start: 20120905
  2. TECTA [Concomitant]
     Active Substance: PANTOPRAZOLE MAGNESIUM
  3. ACTEMRA [Suspect]
     Active Substance: TOCILIZUMAB
     Route: 042
  4. METHOTREXATE. [Concomitant]
     Active Substance: METHOTREXATE
  5. ENDOCET [Concomitant]
     Active Substance: ACETAMINOPHEN\OXYCODONE HYDROCHLORIDE
  6. CRESTOR [Concomitant]
     Active Substance: ROSUVASTATIN CALCIUM
  7. FOLIC ACID. [Concomitant]
     Active Substance: FOLIC ACID
  8. ACTEMRA [Suspect]
     Active Substance: TOCILIZUMAB
     Route: 042
     Dates: start: 20140602, end: 20140602
  9. OLMETEC [Concomitant]
     Active Substance: OLMESARTAN MEDOXOMIL
     Indication: BLOOD PRESSURE MEASUREMENT

REACTIONS (30)
  - Blood pressure abnormal [Recovered/Resolved]
  - Oropharyngeal pain [Recovered/Resolved]
  - Pyrexia [Recovered/Resolved]
  - Urine abnormality [Unknown]
  - Headache [Not Recovered/Not Resolved]
  - Blood urine present [Unknown]
  - Infusion related reaction [Unknown]
  - Localised infection [Not Recovered/Not Resolved]
  - Injection site extravasation [Recovered/Resolved]
  - Infection [Unknown]
  - Bronchitis [Recovered/Resolved]
  - Ear pain [Recovering/Resolving]
  - Uterine cancer [Not Recovered/Not Resolved]
  - Nodule [Not Recovered/Not Resolved]
  - Hepatic cirrhosis [Unknown]
  - Dizziness [Not Recovered/Not Resolved]
  - Oropharyngeal pain [Not Recovered/Not Resolved]
  - Blood pressure fluctuation [Unknown]
  - Blood pressure systolic decreased [Unknown]
  - Malaise [Unknown]
  - Menopausal symptoms [Unknown]
  - Cystitis [Unknown]
  - Hepatic steatosis [Unknown]
  - Nasopharyngitis [Recovering/Resolving]
  - Cough [Recovering/Resolving]
  - Hypotension [Unknown]
  - Weight increased [Unknown]
  - Blood pressure increased [Not Recovered/Not Resolved]
  - Nausea [Recovered/Resolved]
  - Skin infection [Recovered/Resolved]

NARRATIVE: CASE EVENT DATE: 2013
